FAERS Safety Report 17772743 (Version 4)
Quarter: 2020Q3

REPORT INFORMATION
  Report Type: Spontaneous
  Country: HU (occurrence: HU)
  Receive Date: 20200512
  Receipt Date: 20200706
  Transmission Date: 20201102
  Serious: No
  Sender: FDA-Public Use
  Company Number: HU-009507513-2005HUN001946

PATIENT
  Age: 12 Year
  Sex: Male

DRUGS (2)
  1. MOMETASONE FUROATE. [Suspect]
     Active Substance: MOMETASONE FUROATE
     Indication: SCLERODERMA
     Dosage: UNK
     Route: 061
  2. TACROLIMUS. [Suspect]
     Active Substance: TACROLIMUS
     Indication: SCLERODERMA
     Dosage: UNK
     Route: 061

REACTIONS (1)
  - Product use in unapproved indication [Unknown]
